FAERS Safety Report 6584723-4 (Version None)
Quarter: 2010Q1

REPORT INFORMATION
  Report Type: 
  Country: None (occurrence: None)
  Receive Date: 20100217
  Receipt Date: 20100208
  Transmission Date: 20100710
  Serious: Yes (Other)
  Sender: FDA-Public Use
  Company Number: PHHY2010IT07819

PATIENT
  Age: 36 Year
  Sex: Female

DRUGS (1)
  1. CERTICAN [Suspect]

REACTIONS (1)
  - HYPERPYREXIA [None]
